FAERS Safety Report 6433698-7 (Version None)
Quarter: 2009Q4

REPORT INFORMATION
  Report Type: 
  Country: None (occurrence: None)
  Receive Date: 20091110
  Receipt Date: 20091029
  Transmission Date: 20100525
  Serious: Yes (Other)
  Sender: FDA-Public Use
  Company Number: US-ROCHE-665844

PATIENT
  Sex: Male
  Weight: 72.6 kg

DRUGS (1)
  1. CAPECITABINE [Suspect]
     Indication: COLORECTAL CANCER
     Dosage: STRENGTH: 500+150 MG
     Route: 048
     Dates: start: 20090901

REACTIONS (1)
  - URINARY RETENTION [None]
